FAERS Safety Report 9102127 (Version 1)
Quarter: 2013Q1

REPORT INFORMATION
  Report Type: Spontaneous
  Country: GB (occurrence: GB)
  Receive Date: 20130218
  Receipt Date: 20130218
  Transmission Date: 20140127
  Serious: Yes (Hospitalization, Other)
  Sender: FDA-Public Use
  Company Number: GB-ELI_LILLY_AND_COMPANY-GB201302001768

PATIENT
  Age: 71 Year
  Sex: Male
  Weight: 76.2 kg

DRUGS (5)
  1. OLANZAPINE [Suspect]
     Dosage: 10 MG, UNKNOWN
     Route: 065
     Dates: start: 20130110
  2. OLANZAPINE [Suspect]
     Dosage: 15 MG, UNKNOWN
     Route: 065
  3. OLANZAPINE [Suspect]
     Dosage: 20 MG, UNKNOWN
     Route: 065
  4. VENLAFAXINE [Concomitant]
     Dosage: 37.5 MG, UNKNOWN
     Route: 065
  5. VENLAFAXINE [Concomitant]
     Dosage: 70 MG, UNKNOWN
     Route: 065

REACTIONS (12)
  - Condition aggravated [Unknown]
  - Abnormal behaviour [Unknown]
  - Obsessive-compulsive disorder [Unknown]
  - Insomnia [Unknown]
  - Anger [Unknown]
  - Crying [Unknown]
  - Discomfort [Unknown]
  - Euphoric mood [Unknown]
  - Joint swelling [Not Recovered/Not Resolved]
  - Balance disorder [Not Recovered/Not Resolved]
  - Agitation [Unknown]
  - Gait disturbance [Unknown]
